FAERS Safety Report 4631033-8 (Version None)
Quarter: 2005Q2

REPORT INFORMATION
  Report Type: 
  Country: None (occurrence: None)
  Receive Date: 20050408
  Receipt Date: 20050329
  Transmission Date: 20051028
  Serious: Yes (Other)
  Sender: FDA-Public Use
  Company Number: FR-ABBOTT-05P-056-0295434-00

PATIENT
  Sex: Male

DRUGS (2)
  1. DEPAKENE [Suspect]
     Indication: DRUG USE FOR UNKNOWN INDICATION
     Route: 065
     Dates: start: 20030101
  2. DEPAKENE [Suspect]

REACTIONS (3)
  - PAIN [None]
  - PSEUDO LYMPHOMA [None]
  - RASH [None]
